FAERS Safety Report 10753213 (Version 3)
Quarter: 2016Q4

REPORT INFORMATION
  Report Type: Spontaneous
  Country: US (occurrence: US)
  Receive Date: 20150130
  Receipt Date: 20161010
  Transmission Date: 20170206
  Serious: Yes (Other)
  Sender: FDA-Public Use
  Company Number: US-PFIZER INC-2015037517

PATIENT
  Sex: Male

DRUGS (2)
  1. LYRICA [Suspect]
     Active Substance: PREGABALIN
     Dosage: 300 MG, UNK
  2. LYRICA [Suspect]
     Active Substance: PREGABALIN
     Dosage: 150 MG, 1X/DAY

REACTIONS (6)
  - Abasia [Unknown]
  - Abdominal discomfort [Unknown]
  - Neuropathy peripheral [Unknown]
  - Malaise [Unknown]
  - Intentional product misuse [Unknown]
  - Feeling abnormal [Unknown]
